FAERS Safety Report 5955733-2 (Version None)
Quarter: 2008Q4

REPORT INFORMATION
  Report Type: 
  Country: None (occurrence: None)
  Receive Date: 20081117
  Receipt Date: 20081112
  Transmission Date: 20090506
  Serious: Yes (Other)
  Sender: FDA-Public Use
  Company Number: ES-ROXANE LABORATORIES, INC.-2008-RO-00222RO

PATIENT
  Age: 74 Year
  Sex: Male

DRUGS (5)
  1. MORPHINE [Suspect]
     Indication: POSTOPERATIVE ANALGESIA
     Route: 008
  2. COMBINED GENERAL-REGIONAL ANESTHESIA [Suspect]
     Indication: ANAESTHESIA
  3. FENTANYL [Suspect]
     Indication: ANAESTHESIA
  4. PARACETOMOL [Concomitant]
     Indication: ANALGESIA
     Route: 042
  5. KETOROLAC TROMETHAMINE [Concomitant]
     Indication: ANALGESIA
     Route: 042

REACTIONS (1)
  - NYSTAGMUS [None]
